FAERS Safety Report 6389018-X (Version None)
Quarter: 2009Q4

REPORT INFORMATION
  Report Type: 
  Country: None (occurrence: None)
  Receive Date: 20091001
  Receipt Date: 20090921
  Transmission Date: 20100525
  Serious: Yes (Hospitalization)
  Sender: FDA-Public Use
  Company Number: US025029

PATIENT
  Age: 34 Year
  Sex: Male
  Weight: 79.3795 kg

DRUGS (10)
  1. NUVIGIL [Suspect]
     Indication: SCHIZOPHRENIA
     Dosage: 150 MG (150 MG, 1 IN 1 D), ORAL
     Route: 048
     Dates: start: 20081030, end: 20081107
  2. TRIAMCINOLONE [Concomitant]
  3. INVEGA [Concomitant]
  4. VARENICLINE (VARENICLINE) [Concomitant]
  5. BUDESONIDE WITH FORMOTEROL (BUDESONIDE, FORMOTEROL) [Concomitant]
  6. ALBUTEROL [Concomitant]
  7. SYMBICORT [Concomitant]
  8. COGENTIN [Concomitant]
  9. CHANTIX [Concomitant]
  10. ADVAIR DISKUS 100/50 [Concomitant]

REACTIONS (9)
  - CONDITION AGGRAVATED [None]
  - DERMATITIS ALLERGIC [None]
  - ECZEMA ASTEATOTIC [None]
  - EXCORIATION [None]
  - NO THERAPEUTIC RESPONSE [None]
  - SCHIZOPHRENIA [None]
  - TEARFULNESS [None]
  - THINKING ABNORMAL [None]
  - TREATMENT NONCOMPLIANCE [None]
